FAERS Safety Report 7536848 (Version 12)
Quarter: 2014Q3

REPORT INFORMATION
  Report Type: Spontaneous
  Country: US (occurrence: US)
  Receive Date: 20100811
  Receipt Date: 20140718
  Transmission Date: 20150326
  Serious: Yes (Death, Hospitalization, Other)
  Sender: FDA-Public Use
  Company Number: PHEH2010US03508

PATIENT
  Age: 38 Year
  Sex: Female
  Weight: 74.83 kg

DRUGS (17)
  1. CLINDAMYCIN [Concomitant]
     Active Substance: CLINDAMYCIN\CLINDAMYCIN PHOSPHATE
  2. LASIX [Concomitant]
     Active Substance: FUROSEMIDE
     Dosage: 1 DF, QD
     Route: 048
  3. TAMOXIFEN [Concomitant]
     Active Substance: TAMOXIFEN
  4. CLEOCIN [Concomitant]
     Active Substance: CLINDAMYCIN PHOSPHATE
     Dosage: 150 MG, Q8H
     Route: 048
  5. ZOFRAN [Concomitant]
     Active Substance: ONDANSETRON HYDROCHLORIDE
     Dosage: 8 MG, BID
  6. FLUCONAZOLE. [Concomitant]
     Active Substance: FLUCONAZOLE
     Dosage: 2 DF, QD
     Route: 048
  7. CIPROFLOXACIN. [Concomitant]
     Active Substance: CIPROFLOXACIN
     Dosage: 500 MG, BID
  8. TAXOL [Concomitant]
     Active Substance: PACLITAXEL
  9. PERIDEX [Concomitant]
     Active Substance: CHLORHEXIDINE GLUCONATE
  10. ZOMETA [Suspect]
     Active Substance: ZOLEDRONIC ACID
     Dosage: UNK UKN, UNK
  11. ADRIAMYCIN [Concomitant]
     Active Substance: DOXORUBICIN HYDROCHLORIDE
     Dates: start: 20061129
  12. FLOXACIN [Concomitant]
     Active Substance: NORFLOXACIN
  13. VICODIN [Concomitant]
     Active Substance: ACETAMINOPHEN\HYDROCODONE BITARTRATE
  14. CYTOXAN [Concomitant]
     Active Substance: CYCLOPHOSPHAMIDE
     Dates: start: 20061129
  15. XELODA [Concomitant]
     Active Substance: CAPECITABINE
     Dosage: 1500 MG, BID (500 MG - 3 TAB BID)
     Route: 048
  16. MS CONTIN [Concomitant]
     Active Substance: MORPHINE SULFATE
     Dosage: 15 MG, Q12H
     Route: 048
  17. PROCRIT [Concomitant]
     Active Substance: ERYTHROPOIETIN

REACTIONS (86)
  - Haematuria [Unknown]
  - Osteonecrosis of jaw [Unknown]
  - Humerus fracture [Unknown]
  - Myalgia [Unknown]
  - Tendon disorder [Unknown]
  - Fungal infection [Unknown]
  - Palmar-plantar erythrodysaesthesia syndrome [Unknown]
  - Blister [Unknown]
  - Neutropenia [Unknown]
  - Cough [Unknown]
  - Bone pain [Unknown]
  - Cholelithiasis [Unknown]
  - Pain [Unknown]
  - Diarrhoea [Unknown]
  - Musculoskeletal pain [Unknown]
  - Renal cancer [Unknown]
  - Death [Fatal]
  - Deformity [Unknown]
  - Infection [Unknown]
  - Overdose [Unknown]
  - Breast cancer metastatic [Unknown]
  - Chondropathy [Unknown]
  - Chronic granulomatous disease [Unknown]
  - Anaemia [Unknown]
  - Central nervous system lesion [Unknown]
  - Sinus tachycardia [Unknown]
  - Presbyopia [Unknown]
  - Brain oedema [Unknown]
  - Cushingoid [Unknown]
  - Nail disorder [Unknown]
  - Arthralgia [Unknown]
  - Rash vesicular [Unknown]
  - Gingival bleeding [Unknown]
  - Loose tooth [Unknown]
  - Hypoaesthesia [Unknown]
  - Blood alkaline phosphatase increased [Unknown]
  - White blood cell count increased [Unknown]
  - Erythema [Unknown]
  - Toothache [Unknown]
  - Intestinal fistula [Unknown]
  - Metastases to bone [Unknown]
  - Back pain [Unknown]
  - Intervertebral disc degeneration [Unknown]
  - Intervertebral disc protrusion [Unknown]
  - Nasopharyngeal cancer [Unknown]
  - Second primary malignancy [Unknown]
  - Aspartate aminotransferase increased [Unknown]
  - Platelet count decreased [Unknown]
  - Cellulitis [Unknown]
  - Chest pain [Unknown]
  - Fatigue [Unknown]
  - Bronchitis [Unknown]
  - Hepatitis C [Unknown]
  - Alveolar osteitis [Unknown]
  - Convulsion [Unknown]
  - Pathological fracture [Unknown]
  - Gait disturbance [Unknown]
  - Alanine aminotransferase increased [Unknown]
  - Joint swelling [Unknown]
  - Scoliosis [Unknown]
  - Hypoaesthesia oral [Unknown]
  - Amnesia [Unknown]
  - Rash [Recovering/Resolving]
  - Sensitivity of teeth [Unknown]
  - Dental caries [Unknown]
  - Muscular weakness [Unknown]
  - Weight decreased [Unknown]
  - Renal cyst [Unknown]
  - Exostosis [Unknown]
  - Hepatic steatosis [Unknown]
  - Cataract nuclear [Unknown]
  - Metastases to central nervous system [Unknown]
  - Decreased interest [Unknown]
  - Exposed bone in jaw [Unknown]
  - Primary sequestrum [Unknown]
  - Nerve injury [Unknown]
  - Proteinuria [Unknown]
  - Hepatic neoplasm [Unknown]
  - Cardiac disorder [Unknown]
  - Myopia [Unknown]
  - Astigmatism [Unknown]
  - Lymphadenopathy [Unknown]
  - Spinal pain [Unknown]
  - Vomiting [Unknown]
  - Musculoskeletal chest pain [Unknown]
  - Urine abnormality [Unknown]

NARRATIVE: CASE EVENT DATE: 20060922
